FAERS Safety Report 25207713 (Version 2)
Quarter: 2025Q2

REPORT INFORMATION
  Report Type: Spontaneous
  Country: US (occurrence: US)
  Receive Date: 20250417
  Receipt Date: 20250424
  Transmission Date: 20250717
  Serious: Yes (Other)
  Sender: Vantive US Healthcare
  Company Number: US-VANTIVE-2025VAN001705

PATIENT
  Sex: Male
  Weight: 63 kg

DRUGS (1)
  1. EXTRANEAL [Suspect]
     Active Substance: CALCIUM CHLORIDE\ICODEXTRIN\MAGNESIUM CHLORIDE\SODIUM CHLORIDE\SODIUM LACTATE
     Route: 033

REACTIONS (6)
  - Peritonitis bacterial [Recovering/Resolving]
  - COVID-19 [Unknown]
  - Pain [Recovering/Resolving]
  - Influenza like illness [Recovering/Resolving]
  - Peritoneal dialysis complication [Unknown]
  - Device related infection [Unknown]
